FAERS Safety Report 4973108-X (Version None)
Quarter: 2006Q2

REPORT INFORMATION
  Report Type: 
  Country: None (occurrence: None)
  Receive Date: 20060414
  Receipt Date: 20050801
  Transmission Date: 20061013
  Serious: Yes (Other)
  Sender: FDA-Public Use
  Company Number: US-MERCK-0508USA00815

PATIENT
  Age: 67 Year
  Sex: Male

DRUGS (10)
  1. VIOXX [Suspect]
     Indication: ARTHRALGIA
     Route: 048
     Dates: start: 20010515, end: 20040928
  2. VIOXX [Suspect]
     Route: 048
  3. TOPROL-XL [Concomitant]
     Route: 065
  4. SYNTHROID [Concomitant]
     Route: 065
  5. WELLBUTRIN [Concomitant]
     Route: 065
  6. COZAAR [Concomitant]
     Route: 065
  7. PREVACID [Concomitant]
     Route: 065
  8. LIPITOR [Concomitant]
     Route: 065
  9. ECOTRIN [Concomitant]
     Route: 065
  10. ASCORBIC ACID [Concomitant]
     Route: 065

REACTIONS (32)
  - AORTIC VALVE CALCIFICATION [None]
  - AORTIC VALVE STENOSIS [None]
  - ARTERIOSCLEROSIS [None]
  - BLOOD PRESSURE INCREASED [None]
  - CALCINOSIS [None]
  - CEREBROVASCULAR ACCIDENT [None]
  - CEREBROVASCULAR DISORDER [None]
  - CORONARY ARTERY DISEASE [None]
  - DIASTOLIC DYSFUNCTION [None]
  - DILATATION ATRIAL [None]
  - DIZZINESS [None]
  - DYSPNOEA [None]
  - DYSPNOEA EXERTIONAL [None]
  - ELECTROCARDIOGRAM ABNORMAL [None]
  - EMPTY SELLA SYNDROME [None]
  - HERNIA [None]
  - HERNIA REPAIR [None]
  - HYPERTENSION [None]
  - JOINT LOCK [None]
  - MITRAL VALVE INCOMPETENCE [None]
  - MYOCARDIAL INFARCTION [None]
  - NUCLEAR MAGNETIC RESONANCE IMAGING BRAIN ABNORMAL [None]
  - OEDEMA PERIPHERAL [None]
  - ORTHOPNOEA [None]
  - SUPRAVENTRICULAR EXTRASYSTOLES [None]
  - THROMBOSIS [None]
  - TRANSIENT ISCHAEMIC ATTACK [None]
  - TRICUSPID VALVE INCOMPETENCE [None]
  - VENTRICULAR EXTRASYSTOLES [None]
  - VENTRICULAR HYPERTROPHY [None]
  - VISION BLURRED [None]
  - WEIGHT INCREASED [None]
